FAERS Safety Report 12082547 (Version 3)
Quarter: 2016Q2

REPORT INFORMATION
  Report Type: Spontaneous
  Country: IT (occurrence: IT)
  Receive Date: 20160217
  Receipt Date: 20160623
  Transmission Date: 20160815
  Serious: Yes (Hospitalization)
  Sender: FDA-Public Use
  Company Number: IT-ROCHE-1711519

PATIENT
  Age: 75 Year
  Sex: Male

DRUGS (8)
  1. QUETIAPINE. [Concomitant]
     Active Substance: QUETIAPINE
  2. MEMANTINE. [Concomitant]
     Active Substance: MEMANTINE
  3. LEVACT (ITALY) [Concomitant]
     Active Substance: BENDAMUSTINE HYDROCHLORIDE
     Indication: CHRONIC LYMPHOCYTIC LEUKAEMIA
     Dosage: ^2.5 MG/ML -5 GLASS VIALS CONTAINING 100 MG
     Route: 042
     Dates: start: 20160121, end: 20160121
  4. ENALAPRIL [Concomitant]
     Active Substance: ENALAPRIL
  5. MABTHERA [Suspect]
     Active Substance: RITUXIMAB
     Indication: CHRONIC LYMPHOCYTIC LEUKAEMIA
     Dosage: 1 VIAL 500 MG 50 ML?LAST DOSE PRIOR TO SAE 21/JAN/2016
     Route: 042
     Dates: start: 20160121
  6. LAMIVUDINE. [Concomitant]
     Active Substance: LAMIVUDINE
  7. OMEPRAZOLE. [Concomitant]
     Active Substance: OMEPRAZOLE
  8. ACETYLSALICYLIC ACID [Concomitant]
     Active Substance: ASPIRIN
     Indication: THROMBOSIS PROPHYLAXIS
     Route: 048

REACTIONS (4)
  - Chills [Recovering/Resolving]
  - Hypotension [Recovering/Resolving]
  - Oxygen saturation decreased [Recovering/Resolving]
  - Pyrexia [Recovering/Resolving]

NARRATIVE: CASE EVENT DATE: 20160121
